FAERS Safety Report 24129983 (Version 1)
Quarter: 2024Q3

REPORT INFORMATION
  Report Type: Spontaneous
  Country: US (occurrence: None)
  Receive Date: 20240724
  Receipt Date: 20240724
  Transmission Date: 20241016
  Serious: Yes (Other)
  Sender: SUPERNUS
  Company Number: US-SUPERNUS Pharmaceuticals, Inc.-SUP202407-002470

PATIENT
  Age: 17 Year
  Sex: Male

DRUGS (2)
  1. QELBREE [Suspect]
     Active Substance: VILOXAZINE HYDROCHLORIDE
     Indication: Attention deficit hyperactivity disorder
     Dosage: 400MG
  2. PROZAC [Concomitant]
     Active Substance: FLUOXETINE HYDROCHLORIDE
     Dosage: NOT PROVIDED

REACTIONS (1)
  - Seizure [Unknown]
